FAERS Safety Report 7816868-2 (Version None)
Quarter: 2011Q4

REPORT INFORMATION
  Report Type: 
  Country: None (occurrence: None)
  Receive Date: 20111017
  Receipt Date: 20110809
  Transmission Date: 20120403
  Serious: No
  Sender: FDA-Public Use
  Company Number: US-GLAXOSMITHKLINE-A0940217A

PATIENT
  Age: 47 Year
  Sex: Female

DRUGS (1)
  1. CEFTIN [Suspect]
     Route: 048
     Dates: start: 20110806

REACTIONS (1)
  - FOREIGN BODY [None]
